FAERS Safety Report 4558141-4 (Version None)
Quarter: 2005Q1

REPORT INFORMATION
  Report Type: 
  Country: None (occurrence: None)
  Receive Date: 20050121
  Receipt Date: 20050118
  Transmission Date: 20050727
  Serious: Yes (Other)
  Sender: FDA-Public Use
  Company Number: 200510386US

PATIENT
  Age: 69 Year
  Sex: Female
  Weight: 65.9 kg

DRUGS (10)
  1. LASIX [Suspect]
     Route: 048
     Dates: start: 19940101
  2. SPIRONOLACTONE [Suspect]
     Indication: CARDIAC FAILURE CONGESTIVE
     Route: 048
     Dates: start: 20010101, end: 20041215
  3. POTASSIUM CHLORIDE [Concomitant]
  4. MAGNESIUM OXIDE [Concomitant]
  5. AVAPRO [Concomitant]
     Indication: BLOOD PRESSURE ABNORMAL
     Dosage: DOSE: NOT PROVIDED
     Dates: start: 20010901, end: 20040901
  6. METOPROLOL [Concomitant]
  7. DIGOXIN [Concomitant]
     Indication: HEART RATE IRREGULAR
  8. NIACINAMIDE [Concomitant]
     Dosage: DOSE: NOT PROVIDED
     Dates: start: 20040901
  9. VITAMIN B3 [Concomitant]
     Dosage: DOSE: NOT PROVIDED
     Dates: start: 20040901
  10. HERBAL PREPARATION [Concomitant]
     Dosage: DOSE: NOT PROVIDED

REACTIONS (6)
  - ARTHRALGIA [None]
  - IMMOBILE [None]
  - MUSCULOSKELETAL STIFFNESS [None]
  - POST PROCEDURAL PAIN [None]
  - SKIN CANCER [None]
  - TREATMENT NONCOMPLIANCE [None]
